FAERS Safety Report 8317307-8 (Version None)
Quarter: 2012Q2

REPORT INFORMATION
  Report Type: 
  Country: None (occurrence: None)
  Receive Date: 20120427
  Receipt Date: 20120416
  Transmission Date: 20120825
  Serious: Yes (Other)
  Sender: FDA-Public Use
  Company Number: US-JNJFOC-20111207967

PATIENT
  Sex: Female
  Weight: 78.93 kg

DRUGS (6)
  1. REMICADE [Suspect]
     Indication: RHEUMATOID ARTHRITIS
     Dosage: STARTED REMICADE CLOSE TO A YEAR AGO
     Route: 042
     Dates: start: 20110101
  2. VERAPAMIL [Concomitant]
     Indication: BLOOD PRESSURE
     Route: 048
     Dates: start: 20090101
  3. METHOTREXATE [Concomitant]
     Indication: PAIN
     Dosage: U/ TABLETS/ U/ 6TABLETS ONCE WEEKLY/ ORAL
     Route: 048
     Dates: start: 20100101
  4. FOLIC ACID [Concomitant]
     Indication: SPINAL DISORDER
     Dates: start: 20100101
  5. HYDROXYCHLOROQUINE SULFATE [Concomitant]
     Indication: ARTHRITIS
     Dosage: U/ U/ U/ TWICE DAILY/ U
     Dates: start: 20100101
  6. METHOTREXATE [Concomitant]
     Indication: SWELLING
     Dosage: U/ TABLETS/ U/ 6TABLETS ONCE WEEKLY/ ORAL
     Route: 048
     Dates: start: 20100101

REACTIONS (10)
  - ARTHRALGIA [None]
  - DYSURIA [None]
  - ABDOMINAL PAIN LOWER [None]
  - PNEUMONIA [None]
  - SINUSITIS [None]
  - ALOPECIA [None]
  - INSOMNIA [None]
  - PAIN [None]
  - URINE ANALYSIS ABNORMAL [None]
  - WEIGHT INCREASED [None]
